FAERS Safety Report 23450713 (Version 1)
Quarter: 2024Q1

REPORT INFORMATION
  Report Type: Report from Study
  Country: ZA (occurrence: ZA)
  Receive Date: 20240129
  Receipt Date: 20240129
  Transmission Date: 20240409
  Serious: Yes (Other)
  Sender: FDA-Public Use
  Company Number: ZA-MYLANLABS-2024M1007966

PATIENT
  Age: 21 Year
  Sex: Female

DRUGS (1)
  1. EFAVIRENZ [Suspect]
     Active Substance: EFAVIRENZ
     Indication: HIV infection
     Dosage: UNK
     Route: 065

REACTIONS (3)
  - Neurotoxicity [Unknown]
  - Encephalopathy [Unknown]
  - Drug level above therapeutic [Unknown]
